FAERS Safety Report 8510338-4 (Version None)
Quarter: 2012Q3

REPORT INFORMATION
  Report Type: 
  Country: None (occurrence: None)
  Receive Date: 20120713
  Receipt Date: 20120708
  Transmission Date: 20120928
  Serious: Yes (Other)
  Sender: FDA-Public Use
  Company Number: US-ABBOTT-12P-163-0954428-00

PATIENT
  Age: 41 Year
  Sex: Female

DRUGS (4)
  1. HUMIRA [Suspect]
     Indication: CROHN'S DISEASE
     Dates: start: 20120601
  2. HYDROCODONE BITARTRATE [Concomitant]
     Indication: PAIN
  3. HUMIRA [Suspect]
     Indication: CROHN'S DISEASE
     Dates: start: 20120706
  4. ACETAMINOPHEN [Concomitant]
     Indication: PYREXIA

REACTIONS (6)
  - APPENDICECTOMY [None]
  - CHILLS [None]
  - HYPOAESTHESIA [None]
  - PYREXIA [None]
  - NIGHT SWEATS [None]
  - INTESTINAL MASS [None]
